FAERS Safety Report 8935534 (Version 1)
Quarter: 2012Q4

REPORT INFORMATION
  Report Type: 
  Country: US (occurrence: US)
  Receive Date: 20121130
  Receipt Date: 20121130
  Transmission Date: 20130627
  Serious: No
  Sender: FDA-Public Use
  Company Number: US-BAYER-2012-121993

PATIENT
  Sex: Male

DRUGS (1)
  1. LEVITRA [Suspect]

REACTIONS (7)
  - Ocular discomfort [None]
  - Rhinorrhoea [None]
  - Nasal congestion [None]
  - Flushing [None]
  - Headache [None]
  - Expired drug administered [None]
  - Overdose [None]
